FAERS Safety Report 19305577 (Version 1)
Quarter: 2021Q2

REPORT INFORMATION
  Report Type: Spontaneous
  Country: AT (occurrence: AT)
  Receive Date: 20210525
  Receipt Date: 20210525
  Transmission Date: 20210717
  Serious: Yes (Other)
  Sender: FDA-Public Use
  Company Number: AT-INCYTE CORPORATION-2021IN004457

PATIENT

DRUGS (1)
  1. JAKAVI [Suspect]
     Active Substance: RUXOLITINIB
     Indication: PRIMARY MYELOFIBROSIS
     Dosage: 5 MG, BID (2X A DAY)
     Route: 048
     Dates: start: 20160330

REACTIONS (5)
  - Actinic keratosis [Recovering/Resolving]
  - Second primary malignancy [Recovering/Resolving]
  - Squamous cell carcinoma [Recovering/Resolving]
  - Hyperkeratosis [Recovering/Resolving]
  - Bowen^s disease [Recovering/Resolving]

NARRATIVE: CASE EVENT DATE: 20210331
